FAERS Safety Report 14214225 (Version 1)
Quarter: 2017Q4

REPORT INFORMATION
  Report Type: Spontaneous
  Country: IN (occurrence: IN)
  Receive Date: 20171122
  Receipt Date: 20171122
  Transmission Date: 20180321
  Serious: Yes (Other)
  Sender: FDA-Public Use
  Company Number: PHHY2017IN170694

PATIENT
  Age: 28 Year
  Sex: Female

DRUGS (4)
  1. TRAMADOL+PARACETAMOL [Suspect]
     Active Substance: ACETAMINOPHEN\TRAMADOL
     Dosage: 3-4 TABLETS (TRAMADOL 37.5MG AND PARACETAMOL 325MG), QD
     Route: 065
  2. TRAMADOL+PARACETAMOL [Suspect]
     Active Substance: ACETAMINOPHEN\TRAMADOL
     Dosage: 6-7 TABLETS PER DAY (TRAMADOL 37.5MG AND PARACETAMOL 325MG)
     Route: 065
  3. TRAMADOL+PARACETAMOL [Suspect]
     Active Substance: ACETAMINOPHEN\TRAMADOL
     Indication: PROCEDURAL PAIN
     Dosage: 1 DF (TRAMADOL 37.5MG AND PARACETAMOL 325MG), QD
     Route: 065
  4. TRAMADOL+PARACETAMOL [Suspect]
     Active Substance: ACETAMINOPHEN\TRAMADOL
     Dosage: 2 DF (TRAMADOL 37.5MG AND PARACETAMOL 325MG), QD
     Route: 065

REACTIONS (6)
  - Pain [Unknown]
  - Restlessness [Unknown]
  - Abdominal pain [Unknown]
  - Drug withdrawal syndrome [Unknown]
  - Lacrimation increased [Unknown]
  - Rhinorrhoea [Unknown]
